FAERS Safety Report 9629891 (Version 3)
Quarter: 2013Q4

REPORT INFORMATION
  Report Type: Spontaneous
  Country: IT (occurrence: IT)
  Receive Date: 20131017
  Receipt Date: 20131220
  Transmission Date: 20140711
  Serious: Yes (Hospitalization)
  Sender: FDA-Public Use
  Company Number: IT-BRISTOL-MYERS SQUIBB COMPANY-19515121

PATIENT
  Age: 74 Year
  Sex: Male

DRUGS (10)
  1. COUMADIN TABS 5 MG [Suspect]
     Indication: ATRIAL FIBRILLATION
     Dates: end: 20130924
  2. ROSUVASTATIN [Concomitant]
  3. CALCIUM [Concomitant]
  4. METFORMIN [Concomitant]
     Indication: TYPE 2 DIABETES MELLITUS
  5. METOLAZONE [Concomitant]
  6. NITROGLYCERIN [Concomitant]
  7. ESKIM [Concomitant]
  8. LANITOP [Concomitant]
  9. HALCION [Concomitant]
  10. TRITTICO [Concomitant]

REACTIONS (2)
  - Somnolence [Recovered/Resolved]
  - Hypocoagulable state [Recovered/Resolved]
